FAERS Safety Report 19541271 (Version 1)
Quarter: 2021Q3

REPORT INFORMATION
  Report Type: Spontaneous
  Country: US (occurrence: US)
  Receive Date: 20210713
  Receipt Date: 20210713
  Transmission Date: 20211014
  Serious: Yes (Hospitalization, Other)
  Sender: FDA-Public Use
  Company Number: US-TEVA-2021-US-1931389

PATIENT
  Sex: Male

DRUGS (14)
  1. FLUTICASONE/VILANTEROL [Concomitant]
     Active Substance: FLUTICASONE FUROATE\VILANTEROL TRIFENATATE
     Indication: PRODUCT USED FOR UNKNOWN INDICATION
     Route: 065
  2. ASPIRIN. [Suspect]
     Active Substance: ASPIRIN
     Route: 065
  3. TIOTROPIUM [Concomitant]
     Active Substance: TIOTROPIUM
     Indication: PRODUCT USED FOR UNKNOWN INDICATION
     Route: 065
  4. EPINEPHRINE. [Suspect]
     Active Substance: EPINEPHRINE
     Indication: ABDOMINAL PAIN UPPER
     Dosage: RECEIVED 4 DOSES
     Route: 030
  5. KETOROLAC [Suspect]
     Active Substance: KETOROLAC TROMETHAMINE
     Indication: IMMUNE TOLERANCE INDUCTION
     Dosage: 7.56MG RECEIVED FOUR DOSES INTRANASAL
     Route: 050
  6. ASPIRIN. [Suspect]
     Active Substance: ASPIRIN
     Indication: IMMUNE TOLERANCE INDUCTION
     Route: 048
  7. ZILEUTON. [Concomitant]
     Active Substance: ZILEUTON
     Indication: PRODUCT USED FOR UNKNOWN INDICATION
     Route: 065
  8. IBUPROFEN. [Suspect]
     Active Substance: IBUPROFEN
     Indication: PRODUCT USED FOR UNKNOWN INDICATION
     Route: 048
  9. OMEPRAZOLE. [Concomitant]
     Active Substance: OMEPRAZOLE
     Indication: PRODUCT USED FOR UNKNOWN INDICATION
     Route: 065
  10. VITAMIN D3 [Concomitant]
     Active Substance: CHOLECALCIFEROL
     Indication: PRODUCT USED FOR UNKNOWN INDICATION
     Route: 065
  11. PREDNISONE. [Concomitant]
     Active Substance: PREDNISONE
     Indication: PRODUCT USED FOR UNKNOWN INDICATION
     Dosage: 20 MILLIGRAM DAILY; COULD NOT BE TAPERED BELOW 20 MG DAILY
     Route: 065
  12. MONTELUKAST [Concomitant]
     Active Substance: MONTELUKAST SODIUM
     Indication: PRODUCT USED FOR UNKNOWN INDICATION
     Route: 065
  13. BUDESONIDE. [Concomitant]
     Active Substance: BUDESONIDE
     Indication: DRUG THERAPY
     Route: 065
  14. FLUTICASONE/SALMETEROL [Concomitant]
     Active Substance: FLUTICASONE PROPIONATE\SALMETEROL XINAFOATE
     Indication: PRODUCT USED FOR UNKNOWN INDICATION
     Route: 065

REACTIONS (4)
  - Aspirin-exacerbated respiratory disease [Recovered/Resolved]
  - Drug ineffective [Unknown]
  - Pancreatitis acute [Recovered/Resolved]
  - Asthma [Recovered/Resolved]
